FAERS Safety Report 26012050 (Version 1)
Quarter: 2025Q4

REPORT INFORMATION
  Report Type: Spontaneous
  Country: US (occurrence: US)
  Receive Date: 20251107
  Receipt Date: 20251107
  Transmission Date: 20260118
  Serious: Yes (Other)
  Sender: ANI
  Company Number: US-ANIPHARMA-2025-US-042298

PATIENT
  Age: 69 Year
  Sex: Male

DRUGS (15)
  1. LOSARTAN [Concomitant]
     Active Substance: LOSARTAN
  2. PANTOPRAZOLE [Concomitant]
     Active Substance: PANTOPRAZOLE
  3. TAMSULOSIN [Concomitant]
     Active Substance: TAMSULOSIN
  4. KRYSTEXXA [Concomitant]
     Active Substance: PEGLOTICASE
     Route: 042
  5. FARXIGA [Concomitant]
     Active Substance: DAPAGLIFLOZIN PROPANEDIOL
  6. ALLOPURINOL [Concomitant]
     Active Substance: ALLOPURINOL
  7. EZETIMIBE [Concomitant]
     Active Substance: EZETIMIBE
  8. ATORVASTATIN [Concomitant]
     Active Substance: ATORVASTATIN
  9. PREDNISONE [Concomitant]
     Active Substance: PREDNISONE
  10. GOODSENSE ASPIRIN [Concomitant]
  11. MYFORTIC [Concomitant]
     Active Substance: MYCOPHENOLATE SODIUM
  12. CLOPIDOGREL [Concomitant]
     Active Substance: CLOPIDOGREL BISULFATE
  13. NIFEDIPINE [Concomitant]
     Active Substance: NIFEDIPINE
  14. METOPROLOL [Concomitant]
     Active Substance: METOPROLOL
  15. CORTICOTROPIN [Suspect]
     Active Substance: CORTICOTROPIN
     Indication: Gout
     Dosage: 80 UNITS USED TWICE WEEKLY
     Route: 058

REACTIONS (12)
  - Illness [Unknown]
  - Dyspnoea [Unknown]
  - Anaemia [Unknown]
  - Transfusion [Unknown]
  - Contraindicated product administered [Recovered/Resolved]
  - Gastrointestinal haemorrhage [Unknown]
  - Malnutrition [Unknown]
  - Nausea [Unknown]
  - Headache [Not Recovered/Not Resolved]
  - Malaise [Unknown]
  - Haemorrhage [Unknown]
  - Fatigue [Not Recovered/Not Resolved]

NARRATIVE: CASE EVENT DATE: 20250801
